FAERS Safety Report 4527357-5 (Version None)
Quarter: 2004Q4

REPORT INFORMATION
  Report Type: 
  Country: None (occurrence: None)
  Receive Date: 20041130
  Receipt Date: 20040823
  Transmission Date: 20050328
  Serious: Yes (Hospitalization)
  Sender: FDA-Public Use
  Company Number: FABR-10746

PATIENT
  Age: 57 Year
  Sex: Female
  Weight: 62 kg

DRUGS (8)
  1. FABRAZYME [Suspect]
     Indication: FABRY'S DISEASE
     Dosage: 70 MG Q2WKS IV
     Route: 042
     Dates: start: 20031016
  2. FABRAZYME [Suspect]
  3. CARBAMAZEPINE [Concomitant]
  4. ASPIRIN [Concomitant]
  5. PROPAFENONE HYDROCHLORIDE [Concomitant]
  6. PENTOXIFYLLINE [Concomitant]
  7. RANITIDINE [Concomitant]
  8. EUTIROX [Concomitant]

REACTIONS (3)
  - BLOOD PRESSURE DECREASED [None]
  - BLOOD PRESSURE INCREASED [None]
  - CEREBROVASCULAR ACCIDENT [None]
